FAERS Safety Report 14895027 (Version 1)
Quarter: 2018Q2

REPORT INFORMATION
  Report Type: Spontaneous
  Country: US (occurrence: US)
  Receive Date: 20180427
  Receipt Date: 20180427
  Transmission Date: 20180711
  Serious: Yes (Hospitalization)
  Sender: FDA-Public Use
  Company Number: None

PATIENT
  Age: 10 Year
  Sex: Male
  Weight: 31.95 kg

DRUGS (1)
  1. ICY HOT POWER GEL [Suspect]
     Active Substance: MENTHOL
     Indication: JOINT INJURY
     Dosage: ?          QUANTITY:1 APPLY GEL;?
     Route: 061
     Dates: start: 20180426, end: 20180427

REACTIONS (2)
  - Application site vesicles [None]
  - Application site pain [None]

NARRATIVE: CASE EVENT DATE: 20180427
